FAERS Safety Report 24716698 (Version 1)
Quarter: 2024Q4

REPORT INFORMATION
  Report Type: Report from Study
  Country: NL (occurrence: NL)
  Receive Date: 20241210
  Receipt Date: 20241210
  Transmission Date: 20250114
  Serious: Yes (Hospitalization)
  Sender: ABBVIE
  Company Number: NL-ABBVIE-5985885

PATIENT
  Age: 72 Year
  Sex: Male

DRUGS (14)
  1. CARBIDOPA\LEVODOPA [Suspect]
     Active Substance: CARBIDOPA\LEVODOPA
     Indication: Parkinson^s disease
     Route: 058
     Dates: start: 20240513
  2. CARBIDOPA\LEVODOPA [Suspect]
     Active Substance: CARBIDOPA\LEVODOPA
     Dosage: BIR:0.84ML/H,HIR:0.84ML/H,LIR:0.53ML/H,ED:0.30ML?DURATION: REMAINS AT 24 HOURS
     Route: 058
     Dates: start: 20241001, end: 20241003
  3. CARBIDOPA\LEVODOPA [Suspect]
     Active Substance: CARBIDOPA\LEVODOPA
     Dosage: BIR:0.86ML/H,HIR:0.86ML/H,LIR:0.56ML/H,ED:0.15ML, DURATION: REMAINS AT 24 HOURS
     Route: 058
     Dates: start: 20241015, end: 20241114
  4. CARBIDOPA\LEVODOPA [Suspect]
     Active Substance: CARBIDOPA\LEVODOPA
     Dosage: BIR:0.78ML/H,HIR:0.78ML/H,LIR:0.44ML/H,ED:0.30ML. DURATION: REMAINS AT 24 HOURS
     Route: 058
     Dates: start: 20240828, end: 20240909
  5. CARBIDOPA\LEVODOPA [Suspect]
     Active Substance: CARBIDOPA\LEVODOPA
     Dosage: BIR:0.84ML/H,HIR:0.84ML/H,LIR:0.47ML/H,ED:0.30ML?DURATION: REMAINS AT 24 HOURS
     Route: 058
     Dates: start: 20240924, end: 20240926
  6. CARBIDOPA\LEVODOPA [Suspect]
     Active Substance: CARBIDOPA\LEVODOPA
     Dosage: BIR:0.72ML/H,HIR:0.72ML/H,LIR:0.42ML/H,ED:0.25ML?DURATION: REMAINS AT 24 HOURS
     Route: 058
     Dates: start: 20240809, end: 20240822
  7. CARBIDOPA\LEVODOPA [Suspect]
     Active Substance: CARBIDOPA\LEVODOPA
     Dosage: LD:0.0ML,BIR:0.72ML/H,HIR:0.72ML/H,LIR:0.39ML/H,ED:0.30ML?DURATION: REMAINS AT 24 HOURS
     Route: 058
     Dates: start: 20240731, end: 20240809
  8. CARBIDOPA\LEVODOPA [Suspect]
     Active Substance: CARBIDOPA\LEVODOPA
     Dosage: BIR:0.75ML/H,HIR:0.75ML/H,LIR:0.44ML/H,ED:0.25ML. DURATION: REMAINS AT 24 HOURS
     Route: 058
     Dates: start: 20240822, end: 20240828
  9. CARBIDOPA\LEVODOPA [Suspect]
     Active Substance: CARBIDOPA\LEVODOPA
     Dosage: BIR:0.85ML/H,HIR:0.85ML/H,LIR:0.55ML/H,ED:0.15ML?DURATION: REMAINS AT 24 HOURS
     Route: 058
     Dates: start: 20241008, end: 20241015
  10. CARBIDOPA\LEVODOPA [Suspect]
     Active Substance: CARBIDOPA\LEVODOPA
     Dosage: LD:0.0ML,BIR:0.69ML/H,HIR:0.69ML/H,LIR:0.36ML/H,ED:0.30ML, REMAINS AT 24 HOURS
     Route: 058
     Dates: start: 20240726, end: 20240731
  11. CARBIDOPA\LEVODOPA [Suspect]
     Active Substance: CARBIDOPA\LEVODOPA
     Dosage: BIR:0.81ML/H,LIR:0.47ML/H,ED:0.30ML DURATION: REMAINS AT 24 HOURS
     Route: 058
     Dates: start: 20240909, end: 20240924
  12. CARBIDOPA\LEVODOPA [Suspect]
     Active Substance: CARBIDOPA\LEVODOPA
     Dosage: BIR:0.85ML/H,HIR:0.85ML/H,LIR:0.59ML/H,ED:0.15ML, DURATION: REMAINS AT 24 HOURS.
     Route: 058
     Dates: start: 20241114, end: 20241119
  13. CARBIDOPA\LEVODOPA [Suspect]
     Active Substance: CARBIDOPA\LEVODOPA
     Dosage: BIR:0.84ML/H,LIR:0.50ML/H,ED:0.30ML
     Route: 058
     Dates: start: 20240926, end: 20241001
  14. CARBIDOPA\LEVODOPA [Suspect]
     Active Substance: CARBIDOPA\LEVODOPA
     Dosage: BIR:0.85ML/H,LIR:0.54ML/H,ED:0.15ML, DURATION: REMAINS AT 24 HOURS
     Route: 058
     Dates: start: 20241003, end: 20241008

REACTIONS (7)
  - Mental disorder [Not Recovered/Not Resolved]
  - Device breakage [Not Recovered/Not Resolved]
  - Hallucination [Not Recovered/Not Resolved]
  - Urinary tract infection [Not Recovered/Not Resolved]
  - Unintentional medical device removal [Not Recovered/Not Resolved]
  - Suspiciousness [Not Recovered/Not Resolved]
  - Confusional state [Not Recovered/Not Resolved]

NARRATIVE: CASE EVENT DATE: 20240101
